FAERS Safety Report 20408310 (Version 3)
Quarter: 2022Q1

REPORT INFORMATION
  Report Type: Spontaneous
  Country: US (occurrence: US)
  Receive Date: 20220201
  Receipt Date: 20220309
  Transmission Date: 20220423
  Serious: Yes (Other)
  Sender: FDA-Public Use
  Company Number: US-EPICPHARMA-US-2022EPCSPO00109

PATIENT
  Age: 60 Year
  Sex: Female

DRUGS (3)
  1. FUROSEMIDE [Suspect]
     Active Substance: FUROSEMIDE
     Indication: Product used for unknown indication
     Route: 065
  2. ENTRESTO [Suspect]
     Active Substance: SACUBITRIL\VALSARTAN
     Indication: Product used for unknown indication
     Dosage: 49/51 MG
     Route: 048
  3. ENTRESTO [Suspect]
     Active Substance: SACUBITRIL\VALSARTAN
     Dosage: 97/103 MG
     Route: 065

REACTIONS (9)
  - Cardiac flutter [Unknown]
  - Respiratory tract congestion [Unknown]
  - Pain in extremity [Recovered/Resolved]
  - Weight increased [Unknown]
  - Pollakiuria [Unknown]
  - Rhinorrhoea [Unknown]
  - Stress [Unknown]
  - Arthralgia [Unknown]
  - Tremor [Unknown]
